FAERS Safety Report 17996479 (Version 1)
Quarter: 2020Q3

REPORT INFORMATION
  Report Type: Spontaneous
  Country: US (occurrence: US)
  Receive Date: 20200709
  Receipt Date: 20200709
  Transmission Date: 20201103
  Serious: No
  Sender: FDA-Public Use
  Company Number: US-AJANTA PHARMA USA INC.-2087159

PATIENT
  Age: 67 Year
  Sex: Female
  Weight: 82.27 kg

DRUGS (2)
  1. DOXEPIN HYDROCHLORIDE (ANDA 212624) [Suspect]
     Active Substance: DOXEPIN HYDROCHLORIDE
     Indication: INSOMNIA
     Route: 048
     Dates: start: 20200315, end: 202003
  2. AMBIEN [Concomitant]
     Active Substance: ZOLPIDEM TARTRATE

REACTIONS (2)
  - Dysgeusia [Recovered/Resolved]
  - Drug ineffective for unapproved indication [Recovered/Resolved]

NARRATIVE: CASE EVENT DATE: 202003
